FAERS Safety Report 6413997-5 (Version None)
Quarter: 2009Q4

REPORT INFORMATION
  Report Type: 
  Country: None (occurrence: None)
  Receive Date: 20091026
  Receipt Date: 20091012
  Transmission Date: 20100525
  Serious: Yes (Other)
  Sender: FDA-Public Use
  Company Number: IL-CELGENEUS-082-50794-09090395

PATIENT
  Age: 58 Year
  Sex: Female

DRUGS (5)
  1. VIDAZA [Suspect]
     Route: 051
     Dates: start: 20090830, end: 20090904
  2. VIDAZA [Suspect]
     Route: 051
  3. VANCOMYCIN [Concomitant]
     Indication: COLITIS
     Route: 065
  4. CARDILOC [Concomitant]
     Indication: DRUG USE FOR UNKNOWN INDICATION
     Route: 065
  5. DISOTHIAZIDE [Concomitant]
     Indication: DRUG USE FOR UNKNOWN INDICATION
     Route: 065

REACTIONS (2)
  - HEPATIC ENZYME INCREASED [None]
  - PHLEBITIS [None]
